FAERS Safety Report 5987112-6 (Version None)
Quarter: 2008Q4

REPORT INFORMATION
  Report Type: 
  Country: None (occurrence: None)
  Receive Date: 20081126
  Receipt Date: 20080326
  Transmission Date: 20090506
  Serious: Yes (Other)
  Sender: FDA-Public Use
  Company Number: 2008BH002832

PATIENT
  Sex: Female

DRUGS (12)
  1. DIANEAL [Suspect]
     Indication: PERITONEAL DIALYSIS
     Dosage: IP
     Route: 033
     Dates: start: 20080101
  2. DIANEAL [Suspect]
     Indication: PERITONEAL DIALYSIS
     Dosage: IP
     Route: 033
     Dates: start: 20080101
  3. QUININE [Concomitant]
  4. NOVOLIN [Concomitant]
  5. RENAGEL [Concomitant]
  6. CYMBALTA [Concomitant]
  7. ISOBRIDE [Concomitant]
  8. LISINOPRIL [Concomitant]
  9. VITAMIN E [Concomitant]
  10. PANTOPRAZOLE SODIUM [Concomitant]
  11. OMEPRAZOLE [Concomitant]
  12. LEVAQUIN [Concomitant]

REACTIONS (1)
  - PERITONITIS BACTERIAL [None]
